FAERS Safety Report 5794945-8 (Version None)
Quarter: 2008Q2

REPORT INFORMATION
  Report Type: 
  Country: None (occurrence: None)
  Receive Date: 20080630
  Receipt Date: 20080617
  Transmission Date: 20081010
  Serious: Yes (Other)
  Sender: FDA-Public Use
  Company Number: AU-ROCHE-568628

PATIENT
  Sex: Male
  Weight: 85 kg

DRUGS (4)
  1. ISOTRETINOIN [Suspect]
     Dosage: PATIENT THOUGHT HIS DOSE WAS 100 MG BUT HE WAS TAKING TWO DOSE FORMS OF ISOTRETINOIN. STRENGTH 100MG
     Route: 065
     Dates: end: 20020101
  2. ISOTRETINOIN [Suspect]
     Dosage: STRENGTH 20 MG
     Route: 065
     Dates: start: 20000512
  3. ISOTRETINOIN [Suspect]
     Dosage: STRENGTH 60 MG, DOSAGE REGIMEN DAILY
     Route: 065
     Dates: start: 20000721, end: 20001201
  4. TOOTHPASTE NOS [Concomitant]

REACTIONS (6)
  - ALANINE AMINOTRANSFERASE INCREASED [None]
  - ASPARTATE AMINOTRANSFERASE INCREASED [None]
  - DEPRESSION [None]
  - DRY SKIN [None]
  - MOOD SWINGS [None]
  - SUICIDE ATTEMPT [None]
